FAERS Safety Report 14508709 (Version 1)
Quarter: 2018Q1

REPORT INFORMATION
  Report Type: Spontaneous
  Country: FR (occurrence: FR)
  Receive Date: 20180209
  Receipt Date: 20180209
  Transmission Date: 20180509
  Serious: Yes (Other)
  Sender: FDA-Public Use
  Company Number: FR-ROCHE-2065335

PATIENT
  Age: 66 Year
  Sex: Male

DRUGS (7)
  1. ZELBORAF [Suspect]
     Active Substance: VEMURAFENIB
     Indication: PRODUCT USED FOR UNKNOWN INDICATION
     Route: 065
  2. COTAREG [Concomitant]
     Active Substance: HYDROCHLOROTHIAZIDE\VALSARTAN
  3. COTELLIC [Suspect]
     Active Substance: COBIMETINIB
     Indication: PRODUCT USED FOR UNKNOWN INDICATION
     Route: 065
  4. ZOCOR [Concomitant]
     Active Substance: SIMVASTATIN
  5. INEXIUM [Concomitant]
     Active Substance: ESOMEPRAZOLE
  6. DIAMICRON [Concomitant]
     Active Substance: GLICLAZIDE
  7. NABUCOX [Concomitant]
     Active Substance: NABUMETONE

REACTIONS (2)
  - Cholestasis [Recovered/Resolved]
  - Hepatic lesion [Recovered/Resolved]
